FAERS Safety Report 21838335 (Version 2)
Quarter: 2023Q1

REPORT INFORMATION
  Report Type: Spontaneous
  Country: US (occurrence: US)
  Receive Date: 20230109
  Receipt Date: 20230208
  Transmission Date: 20230418
  Serious: No
  Sender: FDA-Public Use
  Company Number: US-PFIZER INC-202300003875

PATIENT
  Age: 10 Year
  Sex: Female
  Weight: 38.56 kg

DRUGS (1)
  1. GENOTROPIN [Suspect]
     Active Substance: SOMATROPIN
     Indication: Growth disorder
     Dosage: 1.3 MG, 1X/DAY (GETS 3 FULL DOSES AND 1.1MG AND HE ONLY DID 5 CLICKS, AND HE GOT 4 COMPLETE DOSES)

REACTIONS (4)
  - Device use issue [Unknown]
  - Drug dose omission by device [Unknown]
  - Wrong technique in device usage process [Unknown]
  - Incorrect dose administered [Unknown]
